FAERS Safety Report 5517693-8 (Version None)
Quarter: 2007Q4

REPORT INFORMATION
  Report Type: 
  Country: None (occurrence: None)
  Receive Date: 20071114
  Receipt Date: 20071105
  Transmission Date: 20080405
  Serious: Yes (Other)
  Sender: FDA-Public Use
  Company Number: US-ELI_LILLY_AND_COMPANY-US200710006397

PATIENT
  Sex: Female

DRUGS (5)
  1. CYMBALTA [Suspect]
     Indication: PAIN
     Dosage: 1 D/F, UNK
     Dates: start: 20070101
  2. CYMBALTA [Suspect]
     Dosage: 120 MG, UNK
     Dates: start: 20070101
  3. ACCUPRIL [Concomitant]
     Indication: BLOOD PRESSURE
  4. AMBIEN [Concomitant]
     Indication: SLEEP DISORDER
     Dosage: 10 MG, UNK
  5. CELEBREX [Concomitant]
     Indication: PAIN
     Dosage: 200 MG, UNK

REACTIONS (1)
  - GASTRIC BYPASS [None]
